FAERS Safety Report 5780024-2 (Version None)
Quarter: 2008Q2

REPORT INFORMATION
  Report Type: 
  Country: None (occurrence: None)
  Receive Date: 20080613
  Receipt Date: 20080520
  Transmission Date: 20081010
  Serious: Yes (Other)
  Sender: FDA-Public Use
  Company Number: WWISSUE-180

PATIENT
  Sex: Female

DRUGS (1)
  1. COLCHICINE TABLETS, 0.6 MG/WEST-WARD [Suspect]
     Indication: GOUT
     Dosage: 1 TAB. EVERY OTHER DAY
     Dates: start: 20080316, end: 20080419

REACTIONS (2)
  - GLOSSODYNIA [None]
  - HYPOAESTHESIA ORAL [None]
